FAERS Safety Report 6241458-5 (Version None)
Quarter: 2009Q2

REPORT INFORMATION
  Report Type: 
  Country: None (occurrence: None)
  Receive Date: 20090623
  Receipt Date: 20030422
  Transmission Date: 20091009
  Serious: Yes (Hospitalization, Other)
  Sender: FDA-Public Use
  Company Number: TR-ROCHE-335345

PATIENT
  Sex: Female
  Weight: 71 kg

DRUGS (49)
  1. DACLIZUMAB [Suspect]
     Route: 042
     Dates: start: 20030331, end: 20030331
  2. DACLIZUMAB [Suspect]
     Route: 042
     Dates: start: 20030415
  3. DACLIZUMAB [Suspect]
     Route: 042
     Dates: start: 20030429
  4. DACLIZUMAB [Suspect]
     Route: 042
     Dates: start: 20030513
  5. DACLIZUMAB [Suspect]
     Route: 042
     Dates: start: 20030527
  6. MYCOPHENOLATE MOFETIL [Suspect]
     Route: 048
     Dates: start: 20030402
  7. MYCOPHENOLATE MOFETIL [Suspect]
     Route: 048
     Dates: start: 20030418
  8. MYCOPHENOLATE MOFETIL [Suspect]
     Route: 048
     Dates: start: 20030428
  9. MYCOPHENOLATE MOFETIL [Suspect]
     Route: 048
     Dates: start: 20030503
  10. MYCOPHENOLATE MOFETIL [Suspect]
     Route: 048
     Dates: start: 20030714
  11. MYCOPHENOLATE MOFETIL [Suspect]
     Route: 048
     Dates: start: 20031014
  12. MYCOPHENOLATE MOFETIL [Suspect]
     Route: 048
     Dates: start: 20040502
  13. SIROLIMUS [Suspect]
     Route: 048
     Dates: start: 20030402
  14. SIROLIMUS [Suspect]
     Route: 048
     Dates: start: 20030804
  15. SIROLIMUS [Suspect]
     Route: 048
     Dates: start: 20030405
  16. SIROLIMUS [Suspect]
     Route: 048
     Dates: start: 20030411
  17. SIROLIMUS [Suspect]
     Route: 048
     Dates: start: 20030516
  18. PREDNISOLONE [Suspect]
     Route: 048
     Dates: start: 20030331
  19. CORTICOSTEROIDS [Suspect]
     Dosage: DRUG: CORTICOSTEROID.
     Route: 048
     Dates: start: 20030402
  20. CORTICOSTEROIDS [Suspect]
     Route: 048
     Dates: start: 20030404
  21. CORTICOSTEROIDS [Suspect]
     Route: 048
     Dates: start: 20030405
  22. CORTICOSTEROIDS [Suspect]
     Route: 048
     Dates: start: 20030416
  23. CORTICOSTEROIDS [Suspect]
     Route: 048
     Dates: start: 20030503
  24. CORTICOSTEROIDS [Suspect]
     Route: 048
     Dates: start: 20030505
  25. CORTICOSTEROIDS [Suspect]
     Route: 048
     Dates: start: 20030714
  26. CORTICOSTEROIDS [Suspect]
     Route: 048
     Dates: start: 20030905
  27. CORTICOSTEROIDS [Suspect]
     Route: 048
     Dates: start: 20030918
  28. CORTICOSTEROIDS [Suspect]
     Route: 048
     Dates: start: 20030930
  29. CORTICOSTEROIDS [Suspect]
     Route: 048
     Dates: start: 20031010
  30. CORTICOSTEROIDS [Suspect]
     Route: 048
     Dates: start: 20031014
  31. CORTICOSTEROIDS [Suspect]
     Route: 048
     Dates: start: 20031119
  32. CORTICOSTEROIDS [Suspect]
     Route: 048
     Dates: start: 20040502
  33. CORTICOSTEROIDS [Suspect]
     Dosage: DRUG: CORTICOSTEROID.
     Route: 042
     Dates: start: 20030430
  34. CORTICOSTEROIDS [Suspect]
     Route: 042
     Dates: start: 20030902
  35. DILTIAZEM [Concomitant]
     Route: 048
     Dates: start: 20030402
  36. DILTIAZEM [Concomitant]
     Route: 048
     Dates: start: 20030410
  37. DILTIAZEM [Concomitant]
     Route: 048
     Dates: start: 20030416
  38. DILTIAZEM [Concomitant]
     Route: 048
     Dates: start: 20030930, end: 20031003
  39. PANTOPRAZOL [Concomitant]
     Route: 048
     Dates: start: 20030401
  40. CALCIUM/VITAMIN D3 [Concomitant]
     Route: 048
     Dates: start: 20030716
  41. DOXAZOSIN MESYLATE [Concomitant]
     Route: 048
     Dates: start: 20030404
  42. DOXAZOSIN MESYLATE [Concomitant]
     Route: 048
     Dates: start: 20030408, end: 20030415
  43. FUROSEMIDE [Concomitant]
     Route: 048
     Dates: start: 20031010
  44. FUROSEMIDE [Concomitant]
     Route: 048
     Dates: start: 20040602
  45. METHYLDOPA [Concomitant]
     Route: 048
     Dates: start: 20030404
  46. METHYLDOPA [Concomitant]
     Route: 048
     Dates: start: 20030416
  47. METHYLDOPA [Concomitant]
     Route: 048
     Dates: start: 20030421
  48. METHYLDOPA [Concomitant]
     Route: 048
     Dates: start: 20030424
  49. CEFTRIAXONE SODIUM [Concomitant]
     Dosage: DRUG: SEPHTRIAXONE
     Route: 042
     Dates: start: 20030402, end: 20030411

REACTIONS (3)
  - B-CELL LYMPHOMA [None]
  - PHARYNGITIS [None]
  - POST PROCEDURAL URINE LEAK [None]
